FAERS Safety Report 14737809 (Version 1)
Quarter: 2018Q2

REPORT INFORMATION
  Report Type: Spontaneous
  Country: RO (occurrence: RO)
  Receive Date: 20180409
  Receipt Date: 20180409
  Transmission Date: 20180711
  Serious: Yes (Other)
  Sender: FDA-Public Use
  Company Number: PHHY2018RO057753

PATIENT
  Age: 28 Year
  Sex: Female

DRUGS (1)
  1. CLINDAMYCIN. [Suspect]
     Active Substance: CLINDAMYCIN
     Indication: SKIN LESION
     Dosage: DOSAGE FORM: UNSPECIFIED
     Route: 061

REACTIONS (2)
  - Acute generalised exanthematous pustulosis [Recovering/Resolving]
  - Acne [Recovering/Resolving]
